FAERS Safety Report 20593996 (Version 1)
Quarter: 2022Q1

REPORT INFORMATION
  Report Type: Report from Study
  Country: US (occurrence: US)
  Receive Date: 20220315
  Receipt Date: 20220315
  Transmission Date: 20220423
  Serious: Yes (Hospitalization, Other)
  Sender: FDA-Public Use
  Company Number: US-NOVARTISPH-NVSC2022US057984

PATIENT
  Sex: Female

DRUGS (2)
  1. KESIMPTA [Suspect]
     Active Substance: OFATUMUMAB
     Indication: Multiple sclerosis
     Dosage: 20 MG/0.4 ML
     Route: 058
  2. MAYZENT [Suspect]
     Active Substance: SIPONIMOD
     Indication: Product used for unknown indication
     Dosage: UP UNTIL JANUARY OF THIS YEAR
     Route: 065

REACTIONS (6)
  - Cystitis [Not Recovered/Not Resolved]
  - Monoplegia [Unknown]
  - COVID-19 [Unknown]
  - Fall [Unknown]
  - Upper limb fracture [Unknown]
  - Muscular weakness [Unknown]
